FAERS Safety Report 10979232 (Version 1)
Quarter: 2015Q1

REPORT INFORMATION
  Report Type: Spontaneous
  Country: GB (occurrence: None)
  Receive Date: 20150325
  Receipt Date: 20150325
  Transmission Date: 20150721
  Serious: Yes (Life-Threatening, Other)
  Sender: FDA-Public Use
  Company Number: GBI003074

PATIENT
  Age: 32 Year
  Sex: Male

DRUGS (1)
  1. ANTIHEMOPHILIC FACTOR [Suspect]
     Active Substance: ANTIHEMOPHILIC FACTOR, HUMAN RECOMBINANT
     Indication: FACTOR VIII DEFICIENCY
     Route: 042

REACTIONS (2)
  - Suspected transmission of an infectious agent via product [None]
  - Hepatitis C [None]
